FAERS Safety Report 8324913-3 (Version None)
Quarter: 2012Q2

REPORT INFORMATION
  Report Type: 
  Country: None (occurrence: None)
  Receive Date: 20120501
  Receipt Date: 20120424
  Transmission Date: 20120825
  Serious: Yes (Other)
  Sender: FDA-Public Use
  Company Number: BR-PFIZER INC-2012102170

PATIENT
  Age: 76 Year
  Sex: Female
  Weight: 102 kg

DRUGS (6)
  1. INDAPEN [Concomitant]
     Indication: BLOOD PRESSURE INCREASED
     Dosage: 1.5 MG, DAILY
     Dates: start: 19970101
  2. XALATAN [Suspect]
     Dosage: 3 UG, 1X/DAY (1 DROP EACH EYE, 1X/DAY)
     Route: 047
     Dates: start: 20011130, end: 20110216
  3. TIMOLOL MALEATE [Concomitant]
     Indication: INTRAOCULAR PRESSURE INCREASED
     Dosage: UNK, 2 DROPS, 2X/DAY
     Dates: start: 19920101, end: 20120424
  4. ENALAPRIL [Concomitant]
     Indication: BLOOD PRESSURE INCREASED
     Dosage: 2 TABLETS OF 20 MG, DAILY
     Dates: start: 19920101
  5. ATENOLOL [Concomitant]
     Indication: BLOOD PRESSURE INCREASED
     Dosage: 2 TABLETS OF 25 MG, DAILY
     Dates: start: 19970101
  6. ASPIRIN [Concomitant]
     Indication: ANTIPLATELET THERAPY
     Dosage: 100 MG, 1X/DAY (AFTER LUNCH)
     Dates: start: 20120301

REACTIONS (1)
  - EYE DISORDER [None]
